FAERS Safety Report 21003060 (Version 2)
Quarter: 2022Q4

REPORT INFORMATION
  Report Type: Report from Study
  Country: RO (occurrence: RO)
  Receive Date: 20220624
  Receipt Date: 20221201
  Transmission Date: 20230112
  Serious: Yes (Other)
  Sender: FDA-Public Use
  Company Number: RO-ROCHE-2337407

PATIENT
  Age: 71 Year
  Sex: Female
  Weight: 70 kg

DRUGS (5)
  1. METHOTREXATE [Suspect]
     Active Substance: METHOTREXATE
     Indication: Product used for unknown indication
     Route: 065
  2. TOCILIZUMAB [Suspect]
     Active Substance: TOCILIZUMAB
     Indication: Rheumatoid arthritis
     Dosage: UNIT DOSE : 162 MG ,FREQUENCY TIME : 1 MONTHS
     Route: 042
     Dates: start: 201902
  3. TOCILIZUMAB [Suspect]
     Active Substance: TOCILIZUMAB
     Indication: Polyarthritis
     Dosage: UNIT DOSE : 162 MG , FREQUENCY TIME : 1 WEEKS ,PRE-FILLED SYRINGE
     Route: 058
  4. TOCILIZUMAB [Suspect]
     Active Substance: TOCILIZUMAB
     Indication: Rheumatoid arthritis
     Route: 065
  5. LEFLUNOMIDE [Concomitant]
     Active Substance: LEFLUNOMIDE
     Indication: Product used for unknown indication

REACTIONS (27)
  - Hepatitis viral [Unknown]
  - Anaphylactic shock [Not Recovered/Not Resolved]
  - Leukopenia [Unknown]
  - Dermatitis allergic [Unknown]
  - Drug hypersensitivity [Unknown]
  - Dry skin [Not Recovered/Not Resolved]
  - Skin disorder [Unknown]
  - Gait disturbance [Recovered/Resolved]
  - Urticaria [Unknown]
  - Urticaria [Not Recovered/Not Resolved]
  - Renal disorder [Recovered/Resolved]
  - Erythema [Unknown]
  - Pruritus [Unknown]
  - Bundle branch block right [Unknown]
  - Psoriasis [Unknown]
  - Rash [Unknown]
  - Weight increased [Unknown]
  - Blood triglycerides increased [Not Recovered/Not Resolved]
  - Lipids increased [Not Recovered/Not Resolved]
  - C-reactive protein increased [Unknown]
  - Rheumatoid factor increased [Unknown]
  - Blood cholesterol increased [Unknown]
  - Product dose omission in error [Unknown]
  - Drug ineffective [Unknown]
  - COVID-19 [Unknown]
  - Weight decreased [Unknown]
  - Feeding disorder [Unknown]

NARRATIVE: CASE EVENT DATE: 20200201
